FAERS Safety Report 24110137 (Version 1)
Quarter: 2024Q3

REPORT INFORMATION
  Report Type: Spontaneous
  Country: AU (occurrence: AU)
  Receive Date: 20240718
  Receipt Date: 20240718
  Transmission Date: 20241016
  Serious: Yes (Other)
  Sender: SANDOZ
  Company Number: AU-SUN PHARMACEUTICAL INDUSTRIES LTD-2024RR-452688

PATIENT
  Age: 44 Year
  Sex: Female

DRUGS (3)
  1. CLOZAPINE [Suspect]
     Active Substance: CLOZAPINE
     Indication: Delusion
     Dosage: UNK
     Route: 065
  2. LURASIDONE HYDROCHLORIDE [Suspect]
     Active Substance: LURASIDONE HYDROCHLORIDE
     Indication: Delusion
     Dosage: 120 MG INTERVAL: 1 DAY
     Route: 065
  3. OLANZAPINE [Suspect]
     Active Substance: OLANZAPINE
     Indication: Delusion
     Dosage: 20 MG  INTERVAL: 1 DAY
     Route: 065

REACTIONS (6)
  - Restlessness [Unknown]
  - Pain in extremity [Unknown]
  - Akathisia [Unknown]
  - Constipation [Unknown]
  - Sedation [Unknown]
  - Treatment noncompliance [Unknown]
